FAERS Safety Report 18119549 (Version 3)
Quarter: 2021Q2

REPORT INFORMATION
  Report Type: Spontaneous
  Country: US (occurrence: US)
  Receive Date: 20200806
  Receipt Date: 20210623
  Transmission Date: 20210717
  Serious: No
  Sender: FDA-Public Use
  Company Number: US-PFIZER INC-2019557934

PATIENT
  Age: 15 Year
  Sex: Female
  Weight: 65.77 kg

DRUGS (4)
  1. GENOTROPIN [Suspect]
     Active Substance: SOMATROPIN
     Dosage: 0.7 MG, DAILY
     Dates: start: 20190830
  2. GENOTROPIN [Suspect]
     Active Substance: SOMATROPIN
     Indication: GROWTH HORMONE DEFICIENCY
     Dosage: 0.6 MG, 1X/DAY
     Route: 058
     Dates: start: 2019
  3. GENOTROPIN [Suspect]
     Active Substance: SOMATROPIN
     Dosage: 0.8 MG, ALTERNATE DAY
  4. GENOTROPIN [Suspect]
     Active Substance: SOMATROPIN
     Dosage: 0.6 MG, ALTERNATE DAY

REACTIONS (12)
  - Fear of injection [Unknown]
  - Product dispensing error [Unknown]
  - Peripheral swelling [Recovering/Resolving]
  - Oedema [Unknown]
  - Device mechanical issue [Unknown]
  - Product dose omission issue [Unknown]
  - Weight increased [Unknown]
  - Incorrect dose administered [Unknown]
  - Headache [Recovered/Resolved]
  - Visual impairment [Unknown]
  - Psychological trauma [Unknown]
  - Dizziness [Unknown]

NARRATIVE: CASE EVENT DATE: 20191223
